FAERS Safety Report 5363618-8 (Version None)
Quarter: 2007Q2

REPORT INFORMATION
  Report Type: 
  Country: None (occurrence: None)
  Receive Date: 20070620
  Receipt Date: 20070612
  Transmission Date: 20071010
  Serious: Yes (Hospitalization)
  Sender: FDA-Public Use
  Company Number: B0475822A

PATIENT
  Age: 44 Year
  Sex: Male

DRUGS (3)
  1. LAMICTAL [Suspect]
     Route: 048
     Dates: end: 20061104
  2. LITHIONIT [Suspect]
     Route: 048
     Dates: end: 20061104
  3. ZOLOFT [Concomitant]

REACTIONS (2)
  - BLOOD CREATININE INCREASED [None]
  - PARKINSONISM [None]
